FAERS Safety Report 15781715 (Version 2)
Quarter: 2019Q1

REPORT INFORMATION
  Report Type: Report from Study
  Country: None (occurrence: US)
  Receive Date: 20190102
  Receipt Date: 20190128
  Transmission Date: 20190417
  Serious: Yes (Other)
  Sender: FDA-Public Use
  Company Number: US-ABBVIE-19K-163-2609201-00

PATIENT
  Sex: Female

DRUGS (1)
  1. VENCLEXTA [Suspect]
     Active Substance: VENETOCLAX
     Indication: MYELODYSPLASTIC SYNDROME
     Dosage: DAILY
     Route: 048
     Dates: start: 201805, end: 2018

REACTIONS (3)
  - Off label use [Not Recovered/Not Resolved]
  - Stem cell transplant [Not Recovered/Not Resolved]
  - Bone marrow transplant [Not Recovered/Not Resolved]

NARRATIVE: CASE EVENT DATE: 2018
